FAERS Safety Report 11699585 (Version 2)
Quarter: 2015Q4

REPORT INFORMATION
  Report Type: Spontaneous
  Country: BG (occurrence: BG)
  Receive Date: 20151105
  Receipt Date: 20151116
  Transmission Date: 20160304
  Serious: Yes (Hospitalization, Other)
  Sender: FDA-Public Use
  Company Number: BG-AMGEN-BGRSP2015116033

PATIENT
  Age: 44 Year
  Sex: Male

DRUGS (1)
  1. ENBREL [Suspect]
     Active Substance: ETANERCEPT
     Indication: ANKYLOSING SPONDYLITIS
     Dosage: 50 MG, WEEKLY
     Route: 065
     Dates: start: 20150903, end: 20150913

REACTIONS (11)
  - Joint swelling [Recovered/Resolved]
  - Malaise [Recovered/Resolved]
  - Asthenia [Recovered/Resolved]
  - Pyrexia [Recovered/Resolved]
  - Joint range of motion decreased [Recovered/Resolved]
  - Arthralgia [Recovered/Resolved]
  - Bacterial sepsis [Recovered/Resolved]
  - Body temperature increased [Recovered/Resolved]
  - General physical health deterioration [Recovered/Resolved]
  - Staphylococcal infection [Recovered/Resolved]
  - Musculoskeletal stiffness [Recovered/Resolved]

NARRATIVE: CASE EVENT DATE: 2015
